FAERS Safety Report 18339823 (Version 1)
Quarter: 2020Q4

REPORT INFORMATION
  Report Type: Spontaneous
  Country: CA (occurrence: CA)
  Receive Date: 20201002
  Receipt Date: 20201002
  Transmission Date: 20210113
  Serious: Yes (Life-Threatening)
  Sender: FDA-Public Use
  Company Number: CA-TEVA-2020-CA-1833863

PATIENT
  Age: 57 Year
  Sex: Male

DRUGS (10)
  1. DEXAMETHASONE. [Concomitant]
     Active Substance: DEXAMETHASONE
     Route: 065
  2. GRASTOFIL SINGLE USE PRE-FILLED SYRINGE [Concomitant]
     Active Substance: FILGRASTIM
  3. SENOKOT [Concomitant]
     Active Substance: SENNOSIDES
  4. CARBOPLATIN. [Suspect]
     Active Substance: CARBOPLATIN
     Route: 042
  5. MESNA. [Concomitant]
     Active Substance: MESNA
  6. IFOSFAMIDE FOR INJECTION, USP [Suspect]
     Active Substance: IFOSFAMIDE
     Route: 042
  7. FLUCONAZOLE. [Concomitant]
     Active Substance: FLUCONAZOLE
  8. GRANISETRON [Concomitant]
     Active Substance: GRANISETRON
  9. METONIA [Concomitant]
     Active Substance: METOCLOPRAMIDE
  10. ETOPOSIDE. [Concomitant]
     Active Substance: ETOPOSIDE

REACTIONS (1)
  - Febrile neutropenia [Recovering/Resolving]
